FAERS Safety Report 21237805 (Version 1)
Quarter: 2022Q3

REPORT INFORMATION
  Report Type: Report from Study
  Country: TW (occurrence: TW)
  Receive Date: 20220822
  Receipt Date: 20220822
  Transmission Date: 20221026
  Serious: Yes (Other)
  Sender: FDA-Public Use
  Company Number: TW-TAKEDA-SPV1-2010-01602

PATIENT
  Age: 6 Year
  Sex: Male
  Weight: 23.5 kg

DRUGS (172)
  1. IDURSULFASE [Suspect]
     Active Substance: IDURSULFASE
     Indication: Mucopolysaccharidosis II
     Dosage: 0.5 MILLIGRAM/KILOGRAM, 1/WEEK
     Route: 041
     Dates: start: 20090622
  2. IDURSULFASE [Suspect]
     Active Substance: IDURSULFASE
     Dosage: 0.5 MILLIGRAM/KILOGRAM, 1X/WEEK
     Route: 041
     Dates: start: 20090810
  3. IDURSULFASE [Suspect]
     Active Substance: IDURSULFASE
     Dosage: 0.55 MILLIGRAM/KILOGRAM, 1/WEEK
     Route: 042
     Dates: start: 20220730
  4. CARBINOXAMINE MALEATE;PSEUDOEPHEDRINE [Concomitant]
     Indication: Respiratory disorder
     Dosage: UNK
     Route: 048
     Dates: start: 20090210, end: 20090210
  5. CARBINOXAMINE MALEATE;PSEUDOEPHEDRINE [Concomitant]
     Dosage: UNK
     Route: 048
     Dates: start: 20090817, end: 20100111
  6. CARBINOXAMINE MALEATE;PSEUDOEPHEDRINE [Concomitant]
     Dosage: UNK
     Route: 048
     Dates: start: 20191006, end: 20191007
  7. CARBINOXAMINE MALEATE;PSEUDOEPHEDRINE [Concomitant]
     Dosage: UNK
     Route: 048
     Dates: start: 20220130, end: 20220206
  8. BETAMETHASONE [Concomitant]
     Active Substance: BETAMETHASONE
     Indication: Pain
     Dosage: UNK
     Route: 048
     Dates: start: 20090817, end: 20100108
  9. BETAMETHASONE [Concomitant]
     Active Substance: BETAMETHASONE
     Indication: Respiratory disorder
     Dosage: UNK
     Route: 048
     Dates: start: 20100218, end: 20100225
  10. BETAMETHASONE [Concomitant]
     Active Substance: BETAMETHASONE
     Dosage: UNK
     Route: 048
     Dates: start: 20100925, end: 20100926
  11. BETAMETHASONE [Concomitant]
     Active Substance: BETAMETHASONE
     Dosage: UNK
     Route: 048
     Dates: start: 20101218, end: 20101220
  12. BETAMETHASONE [Concomitant]
     Active Substance: BETAMETHASONE
     Dosage: UNK
     Route: 048
     Dates: start: 20110118, end: 20110118
  13. BETAMETHASONE [Concomitant]
     Active Substance: BETAMETHASONE
     Dosage: UNK
     Route: 048
     Dates: start: 20110125, end: 20110128
  14. BETAMETHASONE [Concomitant]
     Active Substance: BETAMETHASONE
     Dosage: UNK
     Route: 048
     Dates: start: 20120108, end: 20120110
  15. BETAMETHASONE [Concomitant]
     Active Substance: BETAMETHASONE
     Dosage: UNK
     Route: 048
     Dates: start: 20121202, end: 20121207
  16. BETAMETHASONE [Concomitant]
     Active Substance: BETAMETHASONE
     Dosage: UNK
     Route: 048
     Dates: start: 20130203, end: 20130206
  17. Mebhydroline [Concomitant]
     Indication: Respiratory disorder
     Dosage: UNK
     Route: 048
     Dates: start: 20090817, end: 20090821
  18. Mebhydroline [Concomitant]
     Dosage: UNK
     Route: 048
     Dates: start: 20120304, end: 20120306
  19. Mebhydroline [Concomitant]
     Dosage: UNK
     Route: 048
     Dates: start: 20120311, end: 20120317
  20. DEXTROMETHORPHAN HYDROBROMIDE\LYSOZYME HYDROCHLORIDE\POTASSIUM CRESOLS [Concomitant]
     Active Substance: DEXTROMETHORPHAN HYDROBROMIDE\LYSOZYME HYDROCHLORIDE\POTASSIUM CRESOLSULFONATE
     Indication: Respiratory disorder
     Dosage: UNK
     Route: 048
     Dates: start: 20090817, end: 20090821
  21. DEXTROMETHORPHAN HYDROBROMIDE\LYSOZYME HYDROCHLORIDE\POTASSIUM CRESOLS [Concomitant]
     Active Substance: DEXTROMETHORPHAN HYDROBROMIDE\LYSOZYME HYDROCHLORIDE\POTASSIUM CRESOLSULFONATE
     Indication: Antitussive therapy
     Dosage: UNK
     Route: 048
     Dates: start: 20100218, end: 20100225
  22. DEXTROMETHORPHAN HYDROBROMIDE\LYSOZYME HYDROCHLORIDE\POTASSIUM CRESOLS [Concomitant]
     Active Substance: DEXTROMETHORPHAN HYDROBROMIDE\LYSOZYME HYDROCHLORIDE\POTASSIUM CRESOLSULFONATE
     Dosage: UNK
     Route: 048
     Dates: start: 20110911, end: 20110913
  23. DEXTROMETHORPHAN HYDROBROMIDE\LYSOZYME HYDROCHLORIDE\POTASSIUM CRESOLS [Concomitant]
     Active Substance: DEXTROMETHORPHAN HYDROBROMIDE\LYSOZYME HYDROCHLORIDE\POTASSIUM CRESOLSULFONATE
     Dosage: UNK
     Route: 048
     Dates: start: 20120101, end: 20120107
  24. DEXTROMETHORPHAN HYDROBROMIDE\LYSOZYME HYDROCHLORIDE\POTASSIUM CRESOLS [Concomitant]
     Active Substance: DEXTROMETHORPHAN HYDROBROMIDE\LYSOZYME HYDROCHLORIDE\POTASSIUM CRESOLSULFONATE
     Dosage: UNK
     Dates: start: 20120108, end: 20120114
  25. DEXTROMETHORPHAN HYDROBROMIDE\LYSOZYME HYDROCHLORIDE\POTASSIUM CRESOLS [Concomitant]
     Active Substance: DEXTROMETHORPHAN HYDROBROMIDE\LYSOZYME HYDROCHLORIDE\POTASSIUM CRESOLSULFONATE
     Dosage: UNK
     Route: 048
     Dates: start: 20120617, end: 20120619
  26. DEXTROMETHORPHAN HYDROBROMIDE\LYSOZYME HYDROCHLORIDE\POTASSIUM CRESOLS [Concomitant]
     Active Substance: DEXTROMETHORPHAN HYDROBROMIDE\LYSOZYME HYDROCHLORIDE\POTASSIUM CRESOLSULFONATE
     Dosage: UNK
     Route: 048
     Dates: start: 20170603, end: 20170617
  27. DEXTROMETHORPHAN HYDROBROMIDE\LYSOZYME HYDROCHLORIDE\POTASSIUM CRESOLS [Concomitant]
     Active Substance: DEXTROMETHORPHAN HYDROBROMIDE\LYSOZYME HYDROCHLORIDE\POTASSIUM CRESOLSULFONATE
     Dosage: UNK
     Route: 048
     Dates: start: 20191006, end: 20191007
  28. ACETYLCYSTEINE [Concomitant]
     Active Substance: ACETYLCYSTEINE
     Indication: Respiratory disorder
     Dosage: UNK
     Route: 048
     Dates: start: 20090817, end: 20100210
  29. ACETYLCYSTEINE [Concomitant]
     Active Substance: ACETYLCYSTEINE
     Dosage: UNK
     Route: 048
     Dates: start: 20100218, end: 20100225
  30. ACETYLCYSTEINE [Concomitant]
     Active Substance: ACETYLCYSTEINE
     Dosage: UNK
     Route: 048
     Dates: start: 20100925, end: 20101001
  31. ACETYLCYSTEINE [Concomitant]
     Active Substance: ACETYLCYSTEINE
     Dosage: UNK
     Route: 048
     Dates: start: 20101106, end: 20101112
  32. ACETYLCYSTEINE [Concomitant]
     Active Substance: ACETYLCYSTEINE
     Dosage: UNK
     Route: 048
     Dates: start: 20101120, end: 20101126
  33. ACETYLCYSTEINE [Concomitant]
     Active Substance: ACETYLCYSTEINE
     Dosage: UNK
     Route: 048
     Dates: start: 20101218, end: 20101224
  34. ACETYLCYSTEINE [Concomitant]
     Active Substance: ACETYLCYSTEINE
     Dosage: UNK
     Route: 048
     Dates: start: 20110118, end: 20110218
  35. ACETYLCYSTEINE [Concomitant]
     Active Substance: ACETYLCYSTEINE
     Dosage: UNK
     Route: 048
     Dates: start: 20110313, end: 20110319
  36. ACETYLCYSTEINE [Concomitant]
     Active Substance: ACETYLCYSTEINE
     Dosage: UNK
     Route: 048
     Dates: start: 20110326, end: 20110401
  37. ACETYLCYSTEINE [Concomitant]
     Active Substance: ACETYLCYSTEINE
     Dosage: UNK
     Route: 048
     Dates: start: 20110904, end: 20111227
  38. ACETYLCYSTEINE [Concomitant]
     Active Substance: ACETYLCYSTEINE
     Dosage: UNK
     Route: 048
     Dates: start: 20120101, end: 20120107
  39. ACETYLCYSTEINE [Concomitant]
     Active Substance: ACETYLCYSTEINE
     Dosage: UNK
     Route: 048
     Dates: start: 20120108, end: 20120114
  40. ACETYLCYSTEINE [Concomitant]
     Active Substance: ACETYLCYSTEINE
     Dosage: UNK
     Route: 048
     Dates: start: 20120205, end: 20120225
  41. ACETYLCYSTEINE [Concomitant]
     Active Substance: ACETYLCYSTEINE
     Dosage: UNK
     Route: 048
     Dates: start: 20120304, end: 20120616
  42. ACETYLCYSTEINE [Concomitant]
     Active Substance: ACETYLCYSTEINE
     Dosage: UNK
     Route: 048
     Dates: start: 20120805, end: 20120807
  43. ACETYLCYSTEINE [Concomitant]
     Active Substance: ACETYLCYSTEINE
     Dosage: UNK
     Route: 048
     Dates: start: 20170226, end: 20170302
  44. ACETYLCYSTEINE [Concomitant]
     Active Substance: ACETYLCYSTEINE
     Dosage: UNK
     Route: 048
     Dates: start: 20170603, end: 20170617
  45. ACETYLCYSTEINE [Concomitant]
     Active Substance: ACETYLCYSTEINE
     Dosage: UNK
     Route: 048
     Dates: start: 20220130, end: 20220206
  46. PLATYCODON GRANDIFLORUS WHOLE [Concomitant]
     Active Substance: PLATYCODON GRANDIFLORUS WHOLE
     Indication: Respiratory disorder
     Dosage: UNK
     Route: 048
     Dates: start: 20090817, end: 20100210
  47. PLATYCODON GRANDIFLORUS WHOLE [Concomitant]
     Active Substance: PLATYCODON GRANDIFLORUS WHOLE
     Indication: Antitussive therapy
     Dosage: UNK
     Route: 048
     Dates: start: 20100218, end: 20100225
  48. PLATYCODON GRANDIFLORUS WHOLE [Concomitant]
     Active Substance: PLATYCODON GRANDIFLORUS WHOLE
     Indication: Cough
     Dosage: UNK
     Route: 048
     Dates: start: 20100506, end: 20100510
  49. PLATYCODON GRANDIFLORUS WHOLE [Concomitant]
     Active Substance: PLATYCODON GRANDIFLORUS WHOLE
     Dosage: UNK
     Route: 048
     Dates: start: 20100925, end: 20101001
  50. PLATYCODON GRANDIFLORUS WHOLE [Concomitant]
     Active Substance: PLATYCODON GRANDIFLORUS WHOLE
     Dosage: UNK
     Route: 048
     Dates: start: 20101120, end: 20101126
  51. PLATYCODON GRANDIFLORUS WHOLE [Concomitant]
     Active Substance: PLATYCODON GRANDIFLORUS WHOLE
     Dosage: UNK
     Route: 048
     Dates: start: 20101218, end: 20101224
  52. PLATYCODON GRANDIFLORUS WHOLE [Concomitant]
     Active Substance: PLATYCODON GRANDIFLORUS WHOLE
     Dosage: UNK
     Route: 048
     Dates: start: 20110118, end: 20110218
  53. PLATYCODON GRANDIFLORUS WHOLE [Concomitant]
     Active Substance: PLATYCODON GRANDIFLORUS WHOLE
     Dosage: UNK
     Route: 048
     Dates: start: 20110313, end: 20110319
  54. PLATYCODON GRANDIFLORUS WHOLE [Concomitant]
     Active Substance: PLATYCODON GRANDIFLORUS WHOLE
     Dosage: UNK
     Route: 048
     Dates: start: 20110326, end: 20110401
  55. PLATYCODON GRANDIFLORUS WHOLE [Concomitant]
     Active Substance: PLATYCODON GRANDIFLORUS WHOLE
     Dosage: UNK
     Route: 048
     Dates: start: 20110612, end: 20110615
  56. PLATYCODON GRANDIFLORUS WHOLE [Concomitant]
     Active Substance: PLATYCODON GRANDIFLORUS WHOLE
     Dosage: UNK
     Route: 048
     Dates: start: 20110904, end: 20110906
  57. PLATYCODON GRANDIFLORUS WHOLE [Concomitant]
     Active Substance: PLATYCODON GRANDIFLORUS WHOLE
     Dosage: UNK
     Route: 048
     Dates: start: 20110911, end: 20110913
  58. PLATYCODON GRANDIFLORUS WHOLE [Concomitant]
     Active Substance: PLATYCODON GRANDIFLORUS WHOLE
     Dosage: UNK
     Route: 048
     Dates: start: 20120101, end: 20120107
  59. PLATYCODON GRANDIFLORUS WHOLE [Concomitant]
     Active Substance: PLATYCODON GRANDIFLORUS WHOLE
     Dosage: UNK
     Route: 048
     Dates: start: 20120108, end: 20120114
  60. PLATYCODON GRANDIFLORUS WHOLE [Concomitant]
     Active Substance: PLATYCODON GRANDIFLORUS WHOLE
     Dosage: UNK
     Route: 048
     Dates: start: 20120205, end: 20120211
  61. PLATYCODON GRANDIFLORUS WHOLE [Concomitant]
     Active Substance: PLATYCODON GRANDIFLORUS WHOLE
     Dosage: UNK
     Route: 048
     Dates: start: 20120212, end: 20120216
  62. PLATYCODON GRANDIFLORUS WHOLE [Concomitant]
     Active Substance: PLATYCODON GRANDIFLORUS WHOLE
     Dosage: UNK
     Route: 048
     Dates: start: 20130203, end: 20130206
  63. PLATYCODON GRANDIFLORUS WHOLE [Concomitant]
     Active Substance: PLATYCODON GRANDIFLORUS WHOLE
     Dosage: UNK
     Route: 048
     Dates: start: 20160131, end: 20160206
  64. PLATYCODON GRANDIFLORUS WHOLE [Concomitant]
     Active Substance: PLATYCODON GRANDIFLORUS WHOLE
     Dosage: UNK
     Route: 048
     Dates: start: 20160518, end: 20160522
  65. PLATYCODON GRANDIFLORUS WHOLE [Concomitant]
     Active Substance: PLATYCODON GRANDIFLORUS WHOLE
     Dosage: UNK
     Route: 048
     Dates: start: 20160518, end: 20160522
  66. PLATYCODON GRANDIFLORUS WHOLE [Concomitant]
     Active Substance: PLATYCODON GRANDIFLORUS WHOLE
     Dosage: UNK
     Route: 048
     Dates: start: 20170226, end: 20170302
  67. PLATYCODON GRANDIFLORUS WHOLE [Concomitant]
     Active Substance: PLATYCODON GRANDIFLORUS WHOLE
     Dosage: UNK
     Route: 048
     Dates: start: 20201114, end: 20201114
  68. PLATYCODON GRANDIFLORUS WHOLE [Concomitant]
     Active Substance: PLATYCODON GRANDIFLORUS WHOLE
     Dosage: UNK
     Route: 048
     Dates: start: 20220130, end: 20220206
  69. PROCATEROL HYDROCHLORIDE [Concomitant]
     Active Substance: PROCATEROL HYDROCHLORIDE
     Indication: Respiratory disorder
     Dosage: UNK
     Route: 048
     Dates: start: 20090817, end: 20100108
  70. PROCATEROL HYDROCHLORIDE [Concomitant]
     Active Substance: PROCATEROL HYDROCHLORIDE
     Dosage: UNK
     Route: 048
     Dates: start: 20120108, end: 20120110
  71. PROCATEROL HYDROCHLORIDE [Concomitant]
     Active Substance: PROCATEROL HYDROCHLORIDE
     Dosage: UNK
     Route: 048
     Dates: start: 20120304, end: 20120306
  72. THEOPHYLLINE [Concomitant]
     Active Substance: THEOPHYLLINE
     Indication: Respiratory disorder
     Dosage: UNK
     Route: 048
     Dates: start: 20090817, end: 20100111
  73. THEOPHYLLINE [Concomitant]
     Active Substance: THEOPHYLLINE
     Dosage: UNK
     Route: 048
     Dates: start: 20100218, end: 20100225
  74. ALDIOXA [Concomitant]
     Active Substance: ALDIOXA
     Indication: Gastrointestinal disorder
     Dosage: UNK
     Route: 048
     Dates: start: 20090821, end: 20090826
  75. AZITHROMYCIN ANHYDROUS [Concomitant]
     Active Substance: AZITHROMYCIN ANHYDROUS
     Indication: Infection
     Dosage: UNK
     Route: 048
     Dates: start: 20090821, end: 20100101
  76. AZITHROMYCIN ANHYDROUS [Concomitant]
     Active Substance: AZITHROMYCIN ANHYDROUS
     Indication: Urinary tract infection
     Dosage: UNK
     Route: 048
     Dates: start: 20110326, end: 20110326
  77. AZITHROMYCIN ANHYDROUS [Concomitant]
     Active Substance: AZITHROMYCIN ANHYDROUS
     Dosage: UNK
     Route: 048
     Dates: start: 20170603, end: 20170608
  78. CYPROHEPTADINE [Concomitant]
     Active Substance: CYPROHEPTADINE
     Indication: Respiratory disorder
     Dosage: UNK
     Route: 048
     Dates: start: 20091002, end: 20100210
  79. CYPROHEPTADINE [Concomitant]
     Active Substance: CYPROHEPTADINE
     Indication: Pruritus
     Dosage: UNK
     Route: 048
     Dates: start: 20100204, end: 20100210
  80. CYPROHEPTADINE [Concomitant]
     Active Substance: CYPROHEPTADINE
     Indication: Eczema
     Dosage: UNK
     Route: 048
     Dates: start: 20100925, end: 20101001
  81. CYPROHEPTADINE [Concomitant]
     Active Substance: CYPROHEPTADINE
     Indication: Urticaria
     Dosage: UNK
     Route: 048
     Dates: start: 20101204, end: 20101206
  82. CYPROHEPTADINE [Concomitant]
     Active Substance: CYPROHEPTADINE
     Indication: Migraine
     Dosage: UNK
     Route: 048
     Dates: start: 20190526, end: 20190528
  83. CYPROHEPTADINE [Concomitant]
     Active Substance: CYPROHEPTADINE
     Indication: Headache
     Dosage: UNK
     Route: 048
     Dates: start: 20190602, end: 20190608
  84. PROCATEROL HYDROCHLORIDE [Concomitant]
     Active Substance: PROCATEROL HYDROCHLORIDE
     Dosage: UNK
     Route: 048
     Dates: start: 20100218, end: 20100225
  85. CARBINOXAMINE [Concomitant]
     Active Substance: CARBINOXAMINE
     Dosage: UNK
     Route: 048
     Dates: start: 20100506, end: 20100510
  86. PROCATEROL HYDROCHLORIDE [Concomitant]
     Active Substance: PROCATEROL HYDROCHLORIDE
     Indication: Respiratory disorder
     Dosage: UNK
     Route: 048
     Dates: start: 20100925, end: 20100926
  87. PROCATEROL HYDROCHLORIDE [Concomitant]
     Active Substance: PROCATEROL HYDROCHLORIDE
     Dosage: UNK
     Route: 048
     Dates: start: 20101106, end: 20111111
  88. PROCATEROL HYDROCHLORIDE [Concomitant]
     Active Substance: PROCATEROL HYDROCHLORIDE
     Dosage: UNK
     Route: 048
     Dates: start: 20101218, end: 20101224
  89. PROCATEROL HYDROCHLORIDE [Concomitant]
     Active Substance: PROCATEROL HYDROCHLORIDE
     Dosage: UNK
     Route: 048
     Dates: start: 20110125, end: 20110128
  90. NASCO [Concomitant]
     Indication: Respiratory disorder
     Dosage: UNK
     Route: 048
     Dates: start: 20100925, end: 20101001
  91. NASCO [Concomitant]
     Dosage: UNK
     Route: 048
     Dates: start: 20101106, end: 20101112
  92. NASCO [Concomitant]
     Dosage: UNK
     Route: 048
     Dates: start: 20110118, end: 20110121
  93. NASCO [Concomitant]
     Dosage: UNK
     Route: 048
     Dates: start: 20110326, end: 20110401
  94. NASCO [Concomitant]
     Dosage: UNK
     Route: 042
     Dates: start: 20111106, end: 20111227
  95. NASCO [Concomitant]
     Dosage: UNK
     Route: 048
     Dates: start: 20120205, end: 20120211
  96. NASCO [Concomitant]
     Dosage: UNK
     Route: 048
     Dates: start: 20120212, end: 20120324
  97. PANADOL [Concomitant]
     Active Substance: ACETAMINOPHEN
     Indication: Analgesic therapy
     Dosage: UNK
     Route: 048
     Dates: start: 20100925, end: 20100925
  98. PANADOL [Concomitant]
     Active Substance: ACETAMINOPHEN
     Indication: Pain
     Dosage: UNK
     Route: 048
     Dates: start: 20110118, end: 20110119
  99. PANADOL [Concomitant]
     Active Substance: ACETAMINOPHEN
     Dosage: UNK
     Route: 048
     Dates: start: 20110313, end: 20110319
  100. PANADOL [Concomitant]
     Active Substance: ACETAMINOPHEN
     Dosage: UNK
     Route: 048
     Dates: start: 20140309, end: 20140309
  101. PANADOL [Concomitant]
     Active Substance: ACETAMINOPHEN
     Dosage: UNK
     Route: 048
     Dates: start: 20150801
  102. Peace [Concomitant]
     Indication: Respiratory disorder
     Dosage: UNK
     Route: 048
     Dates: start: 20101030, end: 20101101
  103. Peace [Concomitant]
     Dosage: UNK
     Route: 048
     Dates: start: 20101128, end: 20101130
  104. Peace [Concomitant]
     Dosage: UNK
     Route: 048
     Dates: start: 20110305, end: 20110311
  105. Peace [Concomitant]
     Dosage: UNK
     Route: 048
     Dates: start: 20111009, end: 20111011
  106. Peace [Concomitant]
     Dosage: UNK
     Route: 048
     Dates: start: 20130203, end: 20130207
  107. Peace [Concomitant]
     Dosage: UNK
     Route: 048
     Dates: start: 20140309, end: 20140922
  108. INROLIN [Concomitant]
     Indication: Respiratory disorder
     Dosage: UNK
     Route: 048
     Dates: start: 20101218, end: 20101224
  109. INROLIN [Concomitant]
     Dosage: UNK
     Route: 048
     Dates: start: 20110118, end: 20110128
  110. INROLIN [Concomitant]
     Dosage: UNK
     Route: 048
     Dates: start: 20121021, end: 20121024
  111. Showmin [Concomitant]
     Indication: Respiratory disorder
     Dosage: UNK
     Route: 048
     Dates: start: 20110219, end: 20110224
  112. AUGMENTIN [Concomitant]
     Active Substance: AMOXICILLIN\CLAVULANATE POTASSIUM
     Indication: Respiratory disorder
     Dosage: UNK
     Route: 048
     Dates: start: 20110226, end: 20110226
  113. BEROTEC [Concomitant]
     Active Substance: FENOTEROL HYDROBROMIDE
     Indication: Respiratory disorder
     Dosage: UNK
     Route: 048
     Dates: start: 20110326, end: 20110401
  114. VOLTAREN [Concomitant]
     Active Substance: DICLOFENAC SODIUM
     Indication: Respiratory disorder
     Dosage: UNK
     Route: 048
     Dates: start: 20110326, end: 20110401
  115. DIMETHICONE [Concomitant]
     Active Substance: DIMETHICONE
     Indication: Gastrointestinal disorder
     Dosage: UNK
     Route: 048
     Dates: start: 20110424, end: 20110426
  116. BIFIDOBACTERIUM SPP. [Concomitant]
     Active Substance: BIFIDOBACTERIUM SPP.
     Indication: Gastrointestinal disorder
     Dosage: UNK
     Route: 048
     Dates: start: 20110424, end: 20110426
  117. ENZDASE [Concomitant]
     Indication: Gastrointestinal disorder
     Dosage: UNK
     Route: 048
     Dates: start: 20110508, end: 20110510
  118. TINTEN [Concomitant]
     Indication: Pain
     Dosage: UNK
     Route: 048
     Dates: start: 20110508, end: 20110510
  119. ACETAMINOPHEN [Concomitant]
     Active Substance: ACETAMINOPHEN
     Indication: Pain
     Dosage: UNK
     Route: 048
     Dates: start: 20110904, end: 20110906
  120. ACETAMINOPHEN [Concomitant]
     Active Substance: ACETAMINOPHEN
     Indication: Oropharyngeal pain
     Dosage: UNK
     Route: 048
     Dates: start: 20120205, end: 20120206
  121. ACETAMINOPHEN [Concomitant]
     Active Substance: ACETAMINOPHEN
     Indication: Pyrexia
     Dosage: UNK
     Route: 048
     Dates: start: 20160116, end: 20160118
  122. ACETAMINOPHEN [Concomitant]
     Active Substance: ACETAMINOPHEN
     Dosage: UNK
     Route: 048
     Dates: start: 20160515, end: 20160516
  123. ACETAMINOPHEN [Concomitant]
     Active Substance: ACETAMINOPHEN
     Dosage: UNK
     Route: 048
     Dates: start: 20170226, end: 20170302
  124. CYPROMIN [Concomitant]
     Indication: Respiratory disorder
     Dosage: UNK
     Route: 048
     Dates: start: 20110904, end: 20110906
  125. FENOTEROL [Concomitant]
     Active Substance: FENOTEROL
     Indication: Respiratory disorder
     Dosage: UNK
     Route: 048
     Dates: start: 20110904, end: 20110906
  126. FENOTEROL [Concomitant]
     Active Substance: FENOTEROL
     Dosage: UNK
     Route: 048
     Dates: start: 20191004, end: 20191006
  127. FENOTEROL [Concomitant]
     Active Substance: FENOTEROL
     Dosage: UNK
     Route: 048
     Dates: start: 20191006, end: 20191007
  128. PERIACTIN [Concomitant]
     Active Substance: CYPROHEPTADINE HYDROCHLORIDE
     Indication: Respiratory disorder
     Dosage: UNK
     Route: 048
     Dates: start: 20111106, end: 20111110
  129. PERIACTIN [Concomitant]
     Active Substance: CYPROHEPTADINE HYDROCHLORIDE
     Dosage: UNK
     Route: 048
     Dates: start: 20131222, end: 20131228
  130. MEBHYDROLIN [Concomitant]
     Active Substance: MEBHYDROLIN
     Indication: Respiratory disorder
     Dosage: UNK
     Route: 048
     Dates: start: 20111218, end: 20111222
  131. MEBHYDROLIN [Concomitant]
     Active Substance: MEBHYDROLIN
     Dosage: UNK
     Route: 048
     Dates: start: 20120101, end: 20120107
  132. ALUMINUM HYDROXIDE GEL [Concomitant]
     Active Substance: ALGELDRATE
     Indication: Gastrointestinal disorder
     Dosage: UNK
     Route: 048
     Dates: start: 20120108, end: 20120124
  133. ERYTHROMYCIN [Concomitant]
     Active Substance: ERYTHROMYCIN
     Indication: Infection
     Dosage: UNK
     Route: 048
     Dates: start: 20120108, end: 20120114
  134. ERYTHROMYCIN [Concomitant]
     Active Substance: ERYTHROMYCIN
     Dosage: UNK
     Route: 048
     Dates: start: 20191004, end: 20191006
  135. BISMUTH SUBCARBONATE [Concomitant]
     Active Substance: BISMUTH SUBCARBONATE
     Indication: Gastrointestinal disorder
     Dosage: UNK
     Route: 048
     Dates: start: 20120122, end: 20120124
  136. SERRAPEPTASE [Concomitant]
     Active Substance: SERRAPEPTASE
     Indication: Infection
     Dosage: UNK
     Route: 048
     Dates: start: 20120205, end: 20120211
  137. PILIAN [Concomitant]
     Indication: Respiratory disorder
     Dosage: UNK
     Route: 048
     Dates: start: 20121202, end: 20121217
  138. CODEINE PHOSPHATE [Concomitant]
     Active Substance: CODEINE PHOSPHATE
     Indication: Obstructive airways disorder
     Dosage: UNK
     Route: 048
     Dates: start: 20130312, end: 20130406
  139. KAOPECTIN [Concomitant]
     Dosage: UNK
     Route: 048
     Dates: start: 20130331, end: 20130406
  140. FLUIMUCIL [Concomitant]
     Active Substance: ACETYLCYSTEINE
     Indication: Respiratory disorder
     Dosage: UNK
     Route: 048
     Dates: start: 20130331, end: 20130406
  141. FLUIMUCIL [Concomitant]
     Active Substance: ACETYLCYSTEINE
     Dosage: UNK
     Route: 048
     Dates: start: 20140722, end: 20140922
  142. FLUIMUCIL [Concomitant]
     Active Substance: ACETYLCYSTEINE
     Dosage: UNK
     Route: 048
     Dates: start: 20150208, end: 20150208
  143. FLUIMUCIL [Concomitant]
     Active Substance: ACETYLCYSTEINE
     Dosage: UNK
     Route: 048
     Dates: start: 20151108, end: 20151114
  144. Spersin [Concomitant]
     Indication: Infection
     Dosage: UNK
     Route: 061
     Dates: start: 20130628, end: 20130708
  145. DIHYDROXYALUMINIUM AMINOACETATE [Concomitant]
     Dosage: UNK
     Route: 048
     Dates: start: 20130630, end: 20130701
  146. TRIAMCINOLONE [Concomitant]
     Active Substance: TRIAMCINOLONE
     Indication: Inflammation
     Dosage: UNK
     Route: 061
     Dates: start: 20140907, end: 20140913
  147. DOMPERIDONE [Concomitant]
     Active Substance: DOMPERIDONE
     Indication: Nausea
     Dosage: UNK
     Route: 042
     Dates: start: 20150801
  148. DEXTROMETHORPHAN [Concomitant]
     Active Substance: DEXTROMETHORPHAN
     Indication: Cough
     Dosage: UNK
     Route: 048
     Dates: start: 20151108
  149. DICLOFENAC [Concomitant]
     Active Substance: DICLOFENAC
     Indication: Oropharyngeal pain
     Dosage: UNK
     Route: 048
     Dates: start: 20160117, end: 20160117
  150. DICLOFENAC [Concomitant]
     Active Substance: DICLOFENAC
     Indication: Gastrointestinal disorder
     Dosage: UNK
     Route: 048
     Dates: start: 20160518, end: 20160522
  151. CARBINOXAMINE MALEATE;PSEUDOEPHEDRINE [Concomitant]
     Indication: Respiratory disorder
     Dosage: UNK
     Route: 048
     Dates: start: 20160124, end: 20160125
  152. CARBINOXAMINE MALEATE;PSEUDOEPHEDRINE [Concomitant]
     Dosage: UNK
     Route: 048
     Dates: start: 20160131, end: 20160206
  153. TERBUTALINE SULFATE [Concomitant]
     Active Substance: TERBUTALINE SULFATE
     Indication: Asthma
     Dosage: UNK
     Route: 055
     Dates: start: 20170603, end: 20170611
  154. TERBUTALINE SULFATE [Concomitant]
     Active Substance: TERBUTALINE SULFATE
     Indication: Emphysema
  155. TERBUTALINE SULFATE [Concomitant]
     Active Substance: TERBUTALINE SULFATE
     Indication: Bronchitis
  156. CEFTRIAXONE [Concomitant]
     Active Substance: CEFTRIAXONE
     Dosage: UNK
     Route: 042
     Dates: start: 20170604, end: 20170611
  157. BUDESONIDE [Concomitant]
     Active Substance: BUDESONIDE
     Indication: Asthma
     Dosage: UNK
     Route: 055
     Dates: start: 20170604, end: 20170608
  158. VANCOMYCIN [Concomitant]
     Active Substance: VANCOMYCIN
     Dosage: UNK
     Route: 042
     Dates: start: 20170605, end: 20170608
  159. NEOSTIGMINE METHYLSULFATE [Concomitant]
     Active Substance: NEOSTIGMINE METHYLSULFATE
     Dosage: UNK
     Route: 061
     Dates: end: 20171201
  160. CUATRODERM [Concomitant]
     Indication: Antifungal treatment
     Dosage: UNK
     Route: 061
     Dates: start: 20180512, end: 20180512
  161. BIFIDOBACTERIUM BIFIDUM [Concomitant]
     Active Substance: BIFIDOBACTERIUM BIFIDUM
     Indication: Diarrhoea
     Dosage: UNK
     Route: 048
     Dates: start: 20180707, end: 20180707
  162. DIOKTAEDRISCHER SMEKTIT [Concomitant]
     Dosage: UNK
     Route: 048
     Dates: start: 20180707, end: 20180707
  163. RINDERON V [Concomitant]
     Active Substance: BETAMETHASONE VALERATE
     Dosage: UNK
     Route: 061
     Dates: start: 20181103, end: 20181103
  164. DESLORATADINE [Concomitant]
     Active Substance: DESLORATADINE
     Indication: Rhinitis allergic
     Dosage: UNK
     Route: 048
     Dates: start: 20181103, end: 20181103
  165. CABIDRIN [Concomitant]
     Indication: Rhinitis allergic
     Dosage: UNK
     Route: 048
     Dates: start: 20181223, end: 20181225
  166. CABIDRIN [Concomitant]
     Dosage: UNK
     Route: 048
     Dates: start: 20190120, end: 20190122
  167. CABIDRIN [Concomitant]
     Dosage: UNK
     Route: 048
     Dates: start: 20190126, end: 20190129
  168. CLOTRIMAZOLE [Concomitant]
     Active Substance: CLOTRIMAZOLE
     Indication: Antifungal treatment
     Dosage: UNK
     Route: 061
     Dates: start: 20190818, end: 20190818
  169. CARBOCYSTEINE [Concomitant]
     Active Substance: CARBOCYSTEINE
     Dosage: UNK
     Route: 048
     Dates: start: 20191004, end: 20191006
  170. TIPEPIDINE HIBENZATE [Concomitant]
     Active Substance: TIPEPIDINE HIBENZATE
     Indication: Cough
     Dosage: UNK
     Route: 048
     Dates: start: 20191004, end: 20191006
  171. PSEUDOEPHEDRINE HYDROCHLORIDE [Concomitant]
     Active Substance: PSEUDOEPHEDRINE HYDROCHLORIDE
     Dosage: UNK
     Route: 048
     Dates: start: 20191004, end: 20191006
  172. ENTECAVIR [Concomitant]
     Active Substance: ENTECAVIR
     Indication: Chronic hepatitis B
     Dosage: UNK
     Route: 048
     Dates: start: 20200617, end: 20201228

REACTIONS (1)
  - Pneumonia mycoplasmal [Recovered/Resolved]

NARRATIVE: CASE EVENT DATE: 20091224
